FAERS Safety Report 16670744 (Version 2)
Quarter: 2020Q1

REPORT INFORMATION
  Report Type: Spontaneous
  Country: US (occurrence: US)
  Receive Date: 20190805
  Receipt Date: 20200206
  Transmission Date: 20200409
  Serious: No
  Sender: FDA-Public Use
  Company Number: US-RADIUS HEALTH INC.-2019US002039

PATIENT
  Sex: Female

DRUGS (2)
  1. TYMLOS [Suspect]
     Active Substance: ABALOPARATIDE
     Indication: PSORIASIS
  2. TYMLOS [Suspect]
     Active Substance: ABALOPARATIDE
     Indication: OSTEOPOROSIS POSTMENOPAUSAL
     Dosage: 80 MCG QD
     Route: 058
     Dates: start: 20190317

REACTIONS (1)
  - Pain in extremity [Recovered/Resolved]
